FAERS Safety Report 25602472 (Version 4)
Quarter: 2025Q4

REPORT INFORMATION
  Report Type: Report from Study
  Country: CA (occurrence: CA)
  Receive Date: 20250724
  Receipt Date: 20251202
  Transmission Date: 20260118
  Serious: Yes (Life-Threatening, Hospitalization)
  Sender: JOHNSON AND JOHNSON
  Company Number: CA-JNJFOC-20230913388

PATIENT
  Age: 13 Year
  Sex: Male

DRUGS (10)
  1. STELARA [Suspect]
     Active Substance: USTEKINUMAB
     Indication: Colitis ulcerative
     Route: 058
     Dates: start: 2023
  2. STELARA [Suspect]
     Active Substance: USTEKINUMAB
     Route: 058
     Dates: start: 2023
  3. STELARA [Suspect]
     Active Substance: USTEKINUMAB
     Route: 058
     Dates: start: 20230906
  4. STELARA [Suspect]
     Active Substance: USTEKINUMAB
     Dosage: ON 06-SEP-2023 THE PATIENT COMPLETED PARTIAL MAYO SURVEY AND RECEIVED 2ND INJECTION OF 90 MG OF STEL
     Route: 058
  5. STELARA [Suspect]
     Active Substance: USTEKINUMAB
     Route: 058
  6. STELARA [Suspect]
     Active Substance: USTEKINUMAB
     Route: 058
  7. STELARA [Suspect]
     Active Substance: USTEKINUMAB
     Indication: Colitis ulcerative
     Dosage: INTRAVENOUS DOSE FOLLOWED BY  PREVIOUSLY RECEIVED DOSE OF 90 MG ONCE IN 4 WEEK
     Route: 040
     Dates: start: 2023
  8. STELARA [Suspect]
     Active Substance: USTEKINUMAB
     Route: 040
  9. ENTYVIO [Concomitant]
     Active Substance: VEDOLIZUMAB
     Indication: Product used for unknown indication
     Route: 065
     Dates: start: 202305
  10. PREGABALIN [Concomitant]
     Active Substance: PREGABALIN
     Indication: Product used for unknown indication
     Route: 065
     Dates: start: 202305

REACTIONS (10)
  - Sepsis [Unknown]
  - Ileostomy [Recovering/Resolving]
  - Disease complication [Unknown]
  - Colitis ulcerative [Unknown]
  - Gastrointestinal pain [Not Recovered/Not Resolved]
  - Inappropriate schedule of product administration [Unknown]
  - Product dose omission issue [Unknown]
  - Drug ineffective [Unknown]
  - Product use issue [Unknown]
  - Off label use [Unknown]

NARRATIVE: CASE EVENT DATE: 20230101
